FAERS Safety Report 9201460 (Version 1)
Quarter: 2013Q2

REPORT INFORMATION
  Report Type: Spontaneous
  Country: FR (occurrence: FR)
  Receive Date: 20130401
  Receipt Date: 20130401
  Transmission Date: 20140414
  Serious: Yes (Hospitalization)
  Sender: FDA-Public Use
  Company Number: FR-PFIZER INC-2013101994

PATIENT
  Age: 90 Year
  Sex: Female

DRUGS (14)
  1. CORDARONE [Suspect]
     Dosage: 200 MG DAILY
     Route: 048
  2. BISOPROLOL FUMARATE [Suspect]
     Dosage: 1.25 MG DAILY
     Route: 048
     Dates: end: 20130217
  3. ISOPTIN [Suspect]
     Dosage: 80 MG DAILY
     Route: 048
     Dates: end: 20130218
  4. GABAPENTIN [Concomitant]
     Dosage: UNK
  5. ALFUZOSIN [Concomitant]
     Dosage: UNK
  6. KARDEGIC [Concomitant]
     Dosage: UNK
  7. FUROSEMIDE [Concomitant]
     Dosage: UNK
  8. MODOPAR [Concomitant]
     Dosage: UNK
  9. STABLON [Concomitant]
     Dosage: UNK
  10. DIFFU K [Concomitant]
     Dosage: UNK
  11. TRAMADOL [Concomitant]
     Dosage: UNK
     Dates: end: 20130217
  12. KETOPROFEN [Concomitant]
     Dosage: UNK
     Dates: end: 20130217
  13. CELEBREX [Concomitant]
     Dosage: UNK
     Dates: end: 20130217
  14. XANAX [Concomitant]
     Dosage: UNK
     Dates: end: 20130217

REACTIONS (2)
  - Malaise [Recovered/Resolved]
  - Loss of consciousness [Recovered/Resolved]
